FAERS Safety Report 19451907 (Version 1)
Quarter: 2021Q2

REPORT INFORMATION
  Report Type: Spontaneous
  Country: US (occurrence: US)
  Receive Date: 20210623
  Receipt Date: 20210623
  Transmission Date: 20210717
  Serious: No
  Sender: FDA-Public Use
  Company Number: US-009507513-2106USA004835

PATIENT
  Sex: Male

DRUGS (3)
  1. BELSOMRA [Suspect]
     Active Substance: SUVOREXANT
     Dosage: 10 MG, FREQUENCY UNKNOWN
     Route: 048
  2. BELSOMRA [Suspect]
     Active Substance: SUVOREXANT
     Dosage: 20 MG, FREQUENCY UNKNOWN
     Route: 048
  3. BELSOMRA [Suspect]
     Active Substance: SUVOREXANT
     Dosage: 15 MG, FREQUENCY UNKNOWN
     Route: 048

REACTIONS (1)
  - Drug ineffective [Unknown]
